FAERS Safety Report 9346446 (Version 1)
Quarter: 2013Q2

REPORT INFORMATION
  Report Type: Spontaneous
  Country: SK (occurrence: SK)
  Receive Date: 20130613
  Receipt Date: 20130613
  Transmission Date: 20140414
  Serious: Yes (Death)
  Sender: FDA-Public Use
  Company Number: SK-ROCHE-1236584

PATIENT
  Age: 58 Year
  Sex: Female

DRUGS (4)
  1. XOLAIR [Suspect]
     Indication: PRODUCT USED FOR UNKNOWN INDICATION
     Route: 065
     Dates: start: 20100504
  2. SERETIDE [Concomitant]
  3. ATROVENT [Concomitant]
  4. MONTELUKAST [Concomitant]

REACTIONS (1)
  - Death [Fatal]
